FAERS Safety Report 25658798 (Version 3)
Quarter: 2025Q3

REPORT INFORMATION
  Report Type: Report from Study
  Country: US (occurrence: US)
  Receive Date: 20250808
  Receipt Date: 20250904
  Transmission Date: 20251020
  Serious: No
  Sender: ACADIA PHARMACEUTICALS
  Company Number: US-ACADIA PHARMACEUTICALS INC.-ACA-2025-TRF-008982

PATIENT
  Sex: Female
  Weight: 57 kg

DRUGS (16)
  1. DAYBUE [Suspect]
     Active Substance: TROFINETIDE
     Indication: Rett syndrome
     Dosage: 60 MILLILITER, BID
     Dates: start: 202409
  2. BACLOFEN [Concomitant]
     Active Substance: BACLOFEN
  3. SINEMET [Concomitant]
     Active Substance: CARBIDOPA\LEVODOPA
  4. CAMRESE [Concomitant]
     Active Substance: ETHINYL ESTRADIOL\LEVONORGESTREL
  5. CITALOPRAM [Concomitant]
     Active Substance: CITALOPRAM
  6. CLONAZEPAM [Concomitant]
     Active Substance: CLONAZEPAM
  7. DENOSUMAB [Concomitant]
     Active Substance: DENOSUMAB
  8. DESONIDE [Concomitant]
     Active Substance: DESONIDE
  9. DICYCLOMINE [Concomitant]
     Active Substance: DICYCLOMINE HYDROCHLORIDE
  10. DEPAKOTE [Concomitant]
     Active Substance: DIVALPROEX SODIUM
  11. ESOMEPRAZOLE [Concomitant]
     Active Substance: ESOMEPRAZOLE
  12. HYOSCYAMINE [Concomitant]
     Active Substance: HYOSCYAMINE
  13. NITROFURANTOIN [Concomitant]
     Active Substance: NITROFURANTOIN
  14. NORTRIPTYLINE [Concomitant]
     Active Substance: NORTRIPTYLINE
  15. RIFAMPIN [Concomitant]
     Active Substance: RIFAMPIN
  16. TRAZODONE [Concomitant]
     Active Substance: TRAZODONE HYDROCHLORIDE

REACTIONS (1)
  - Diarrhoea [Not Recovered/Not Resolved]
